FAERS Safety Report 6710559-7 (Version None)
Quarter: 2010Q2

REPORT INFORMATION
  Report Type: 
  Country: None (occurrence: None)
  Receive Date: 20100504
  Receipt Date: 20100311
  Transmission Date: 20101027
  Serious: No
  Sender: FDA-Public Use
  Company Number: US-BAYER-201016732NA

PATIENT
  Age: 76 Year
  Sex: Female

DRUGS (7)
  1. ULTRAVIST 370 [Suspect]
     Indication: ANGIOGRAM
     Dosage: TOTAL DAILY DOSE: 125 ML
     Route: 058
     Dates: start: 20100311, end: 20100311
  2. CLONIDINE HCL [Concomitant]
     Route: 048
  3. COZAAR [Concomitant]
  4. METOPROLOL [Concomitant]
  5. HYDROCHLOROTHIAZIDE [Concomitant]
  6. SUCCINATE [Concomitant]
  7. IV FLUID [Concomitant]

REACTIONS (3)
  - LACRIMATION INCREASED [None]
  - SNEEZING [None]
  - URTICARIA [None]
